FAERS Safety Report 7554247-6 (Version None)
Quarter: 2011Q2

REPORT INFORMATION
  Report Type: 
  Country: None (occurrence: None)
  Receive Date: 20110617
  Receipt Date: 20110613
  Transmission Date: 20111010
  Serious: No
  Sender: FDA-Public Use
  Company Number: US-PFIZER INC-2011129206

PATIENT
  Sex: Female

DRUGS (17)
  1. GLYBURIDE [Concomitant]
     Dosage: 5 MG, 2X/DAY
  2. CITALOPRAM [Concomitant]
     Dosage: 20 MG, DAILY
  3. BUPROPION [Concomitant]
     Dosage: UNK
  4. SIMVASTATIN [Concomitant]
     Dosage: 20 MG, DAILY
  5. LYRICA [Suspect]
     Indication: PAIN IN EXTREMITY
  6. LYRICA [Suspect]
     Indication: FEELING HOT
  7. PLAVIX [Concomitant]
     Dosage: 75 MG, DAILY
  8. LYRICA [Suspect]
     Indication: NEUROPATHY PERIPHERAL
     Dosage: 75 MG, 2X/DAY
     Route: 048
     Dates: start: 20110601
  9. TRAZODONE [Concomitant]
     Dosage: 2 TABLETS OF 50MG ONCE A DAY
  10. METFORMIN [Concomitant]
     Dosage: 1000 MG, 2X/DAY
  11. ASPIRIN [Concomitant]
     Dosage: UNK
  12. POTASSIUM [Concomitant]
     Dosage: UNK
  13. ALPRAZOLAM [Concomitant]
     Dosage: 0.5 MG, DAILY
  14. GLUCOPHAGE [Concomitant]
     Dosage: UNK
  15. ISOSORBIDE [Concomitant]
     Dosage: 30 MG, 2X/DAY
  16. CALCIUM [Concomitant]
     Dosage: UNK
  17. VITAMIN B-12 [Concomitant]
     Dosage: UNK

REACTIONS (2)
  - VISION BLURRED [None]
  - OSCILLOPSIA [None]
